FAERS Safety Report 5115001-8 (Version None)
Quarter: 2006Q3

REPORT INFORMATION
  Report Type: 
  Country: None (occurrence: None)
  Receive Date: 20060922
  Receipt Date: 20060919
  Transmission Date: 20061208
  Serious: Yes (Hospitalization, Other)
  Sender: FDA-Public Use
  Company Number: SPV1-2006-00312

PATIENT
  Age: 18 Year
  Sex: Male
  Weight: 80.3 kg

DRUGS (3)
  1. ADDERALL 10 [Suspect]
     Indication: ATTENTION DEFICIT/HYPERACTIVITY DISORDER
     Dates: start: 20040101, end: 20050101
  2. ADDERALL XR 10 [Suspect]
     Indication: ATTENTION DEFICIT/HYPERACTIVITY DISORDER
     Dosage: 30 MG
     Dates: start: 20040101, end: 20050101
  3. SEROQUEL [Concomitant]

REACTIONS (16)
  - ABNORMAL BEHAVIOUR [None]
  - AFFECT LABILITY [None]
  - AGGRESSION [None]
  - BLOOD BILIRUBIN INCREASED [None]
  - BLOOD PRESSURE DECREASED [None]
  - CONCUSSION [None]
  - CONDITION AGGRAVATED [None]
  - DRUG ABUSER [None]
  - FALL [None]
  - HYPERTENSION [None]
  - INSOMNIA [None]
  - OVERDOSE [None]
  - SINUS DISORDER [None]
  - SOMNOLENCE [None]
  - TACHYCARDIA [None]
  - THINKING ABNORMAL [None]
